FAERS Safety Report 8459413-3 (Version None)
Quarter: 2012Q2

REPORT INFORMATION
  Report Type: 
  Country: None (occurrence: None)
  Receive Date: 20120622
  Receipt Date: 20120613
  Transmission Date: 20120825
  Serious: Yes (Hospitalization, Disabling, Other)
  Sender: FDA-Public Use
  Company Number: US-EISAI INC-E3810-05625-SPO-US

PATIENT
  Sex: Male

DRUGS (6)
  1. KAPIDEX [Suspect]
     Dosage: UNKNOWN
     Dates: start: 20080401, end: 20100901
  2. PREVACID [Suspect]
     Dosage: UNKNOWN
     Dates: start: 20080401, end: 20100901
  3. DEXILANT [Suspect]
     Dosage: UNKNOWN
     Dates: start: 20080401, end: 20100901
  4. NEXIUM [Suspect]
     Dosage: UNKNOWN
     Dates: start: 20080401, end: 20100901
  5. ACIPHEX [Suspect]
     Dosage: UNKNOWN
     Route: 048
     Dates: start: 20080401, end: 20100901
  6. ZEGERID [Suspect]
     Dosage: UNKNOWN
     Dates: start: 20080401, end: 20100901

REACTIONS (11)
  - EMOTIONAL DISTRESS [None]
  - PAIN [None]
  - HYPOMAGNESAEMIA [None]
  - MUSCLE SPASMS [None]
  - GASTRITIS EROSIVE [None]
  - OESOPHAGEAL ULCER [None]
  - CONFUSIONAL STATE [None]
  - BOWEL MOVEMENT IRREGULARITY [None]
  - DIZZINESS [None]
  - CARDIAC DISORDER [None]
  - FATIGUE [None]
